FAERS Safety Report 16432199 (Version 1)
Quarter: 2019Q3

REPORT INFORMATION
  Report Type: Spontaneous
  Country: US (occurrence: US)
  Receive Date: 20190614
  Receipt Date: 20190614
  Transmission Date: 20191004
  Serious: No
  Sender: FDA-Public Use
  Company Number: None

PATIENT
  Age: 61 Month
  Sex: Male

DRUGS (15)
  1. CREON [Concomitant]
     Active Substance: PANCRELIPASE AMYLASE\PANCRELIPASE LIPASE\PANCRELIPASE PROTEASE
  2. FUROSEMIDE. [Concomitant]
     Active Substance: FUROSEMIDE
  3. LYRICA [Concomitant]
     Active Substance: PREGABALIN
  4. HYDROMORPHONE [Concomitant]
     Active Substance: HYDROMORPHONE
  5. LEVEMIR [Concomitant]
     Active Substance: INSULIN DETEMIR
  6. ZOCOR [Concomitant]
     Active Substance: SIMVASTATIN
  7. CALCIUM ACETATE. [Concomitant]
     Active Substance: CALCIUM ACETATE
  8. VENLAFAXINE [Concomitant]
     Active Substance: VENLAFAXINE HYDROCHLORIDE
  9. RANITIDINE. [Concomitant]
     Active Substance: RANITIDINE
  10. ATENOLOL. [Concomitant]
     Active Substance: ATENOLOL
  11. FERROUS SULFATE. [Concomitant]
     Active Substance: FERROUS SULFATE
  12. RAYALDEE [Suspect]
     Active Substance: CALCIFEDIOL
     Indication: HYPERPARATHYROIDISM
     Route: 048
     Dates: start: 20190419, end: 20190614
  13. SODIUM BICARB [Concomitant]
     Active Substance: SODIUM BICARBONATE
  14. ASPIRIN. [Concomitant]
     Active Substance: ASPIRIN
  15. NOVOLOG [Concomitant]
     Active Substance: INSULIN ASPART

REACTIONS (3)
  - Nausea [None]
  - Irritability [None]
  - Asthenia [None]

NARRATIVE: CASE EVENT DATE: 20190614
